FAERS Safety Report 16326918 (Version 1)
Quarter: 2019Q2

REPORT INFORMATION
  Report Type: Spontaneous
  Country: US (occurrence: US)
  Receive Date: 20190412
  Receipt Date: 20190412
  Transmission Date: 20190711
  Serious: Yes (Other)
  Sender: FDA-Public Use
  Company Number: None

PATIENT
  Age: 60 Year
  Sex: Male

DRUGS (1)
  1. WARFARIN TAB 1MG [Suspect]
     Active Substance: WARFARIN SODIUM
     Route: 048
     Dates: start: 201801

REACTIONS (4)
  - Fatigue [None]
  - Faeces discoloured [None]
  - Gastrointestinal haemorrhage [None]
  - Flatulence [None]

NARRATIVE: CASE EVENT DATE: 20190412
